FAERS Safety Report 26217216 (Version 1)
Quarter: 2025Q4

REPORT INFORMATION
  Report Type: Other
  Country: EU (occurrence: EU)
  Receive Date: 20251231
  Receipt Date: 20251231
  Transmission Date: 20260119
  Serious: Yes (Hospitalization)
  Sender: ZYDUS PHARM
  Company Number: None

PATIENT

DRUGS (6)
  1. ARIPIPRAZOLE [Suspect]
     Active Substance: ARIPIPRAZOLE
     Indication: Wrong patient
     Dosage: 30 MILLIGRAM, 1 TOTAL
     Route: 048
     Dates: start: 20251003, end: 20251003
  2. VALPROMIDE [Suspect]
     Active Substance: VALPROMIDE
     Indication: Wrong patient
     Dosage: 300 MILLIGRAM,1 TOTAL
     Route: 048
     Dates: start: 20251003, end: 20251003
  3. TRIMEPRAZINE [Suspect]
     Active Substance: TRIMEPRAZINE
     Indication: Wrong patient
     Dosage: 25 MILLIGRAM,1 TOTAL
     Route: 048
     Dates: start: 20251003, end: 20251003
  4. OXAZEPAM [Suspect]
     Active Substance: OXAZEPAM
     Indication: Wrong patient
     Dosage: 25 MILLIGRAM,1 TOTAL
     Route: 048
     Dates: start: 20251003, end: 20251003
  5. TRIHEXYPHENIDYL HYDROCHLORIDE [Suspect]
     Active Substance: TRIHEXYPHENIDYL HYDROCHLORIDE
     Indication: Wrong patient
     Dosage: 1 DOSAGE FORM,1 TOTAL
     Route: 048
     Dates: start: 20251003, end: 20251003
  6. MELATONIN [Suspect]
     Active Substance: MELATONIN
     Indication: Wrong patient
     Dosage: 2 MILLIGRAM, 1 TOTAL
     Route: 048
     Dates: start: 20251003, end: 20251003

REACTIONS (1)
  - Coma [Recovered/Resolved]

NARRATIVE: CASE EVENT DATE: 20251003
